FAERS Safety Report 13647688 (Version 1)
Quarter: 2017Q2

REPORT INFORMATION
  Report Type: Spontaneous
  Country: US (occurrence: US)
  Receive Date: 20170613
  Receipt Date: 20170613
  Transmission Date: 20170830
  Serious: No
  Sender: FDA-Public Use
  Company Number: US-AMNEAL PHARMACEUTICALS-2017AMN00627

PATIENT
  Sex: Female
  Weight: 52.15 kg

DRUGS (7)
  1. ESTRADIOL. [Suspect]
     Active Substance: ESTRADIOL
  2. WELLBUTRIN [Concomitant]
     Active Substance: BUPROPION HYDROCHLORIDE
  3. VITAMIN D3 [Concomitant]
     Active Substance: CHOLECALCIFEROL
  4. BIOTIN [Concomitant]
     Active Substance: BIOTIN
  5. ALLEGRA [Concomitant]
     Active Substance: FEXOFENADINE HYDROCHLORIDE
  6. ZANTAK [Concomitant]
  7. PERIDIUM [Concomitant]

REACTIONS (3)
  - Product substitution issue [Unknown]
  - Vulvovaginal erythema [Recovered/Resolved]
  - Vulvovaginal discomfort [Recovered/Resolved]
